FAERS Safety Report 7514180-2 (Version None)
Quarter: 2011Q2

REPORT INFORMATION
  Report Type: 
  Country: None (occurrence: None)
  Receive Date: 20110531
  Receipt Date: 20110524
  Transmission Date: 20111010
  Serious: Yes (Hospitalization)
  Sender: FDA-Public Use
  Company Number: US-B.I. PHARMACEUTICALS,INC./RIDGEFIELD-2011-BP-11093BP

PATIENT
  Sex: Female

DRUGS (13)
  1. PRADAXA [Suspect]
     Indication: ATRIAL FIBRILLATION
     Dosage: 300 MG
     Route: 048
     Dates: start: 20110204
  2. ALENDRONATE SODIUM [Concomitant]
  3. PRADAXA [Suspect]
     Dosage: 300 MG
     Route: 048
     Dates: start: 20110420
  4. CARDIZEM CD [Concomitant]
     Indication: HYPERTENSION
     Dosage: 120 MG
     Route: 048
  5. MATURE VITAMIN [Concomitant]
  6. METFORMIN HCL [Concomitant]
     Indication: DIABETES MELLITUS
     Dosage: 2000 MG
     Route: 048
  7. RYTHMOL [Concomitant]
     Dosage: 450 MG
  8. CALCIUM CARBONATE [Concomitant]
  9. FISH OIL [Concomitant]
  10. VYTORIN [Concomitant]
     Indication: HYPERCHOLESTEROLAEMIA
     Route: 048
  11. ASPIRIN [Concomitant]
     Dosage: 80 MG
  12. NAPROXEN (ALEVE) [Concomitant]
  13. ASCORBIC ACID [Concomitant]

REACTIONS (2)
  - HEART RATE IRREGULAR [None]
  - HAEMATURIA [None]
